FAERS Safety Report 6539331-8 (Version None)
Quarter: 2010Q1

REPORT INFORMATION
  Report Type: 
  Country: None (occurrence: None)
  Receive Date: 20100115
  Receipt Date: 20100108
  Transmission Date: 20100710
  Serious: Yes (Death, Other)
  Sender: FDA-Public Use
  Company Number: FR-GENENTECH-286890

PATIENT
  Sex: Female
  Weight: 76 kg

DRUGS (32)
  1. MABTHERA [Suspect]
     Indication: DIFFUSE LARGE B-CELL LYMPHOMA
     Dosage: 660 MG, UNK
     Route: 042
     Dates: start: 20070412, end: 20090218
  2. MABTHERA [Suspect]
     Dosage: UNK
     Route: 042
     Dates: start: 20090119, end: 20090318
  3. MITOXANTRONE [Suspect]
     Indication: DIFFUSE LARGE B-CELL LYMPHOMA
     Dosage: UNK
     Dates: start: 20090119, end: 20090318
  4. IFOSFAMIDE [Suspect]
     Indication: DIFFUSE LARGE B-CELL LYMPHOMA
     Dosage: 2100 MG, QD
     Route: 042
     Dates: start: 20090119, end: 20090121
  5. IFOSFAMIDE [Suspect]
     Dosage: 2300 MG, QD
     Route: 042
     Dates: start: 20090216, end: 20090218
  6. IFOSFAMIDE [Suspect]
     Dosage: 2850 MG, QD
     Route: 042
     Dates: start: 20090318, end: 20090320
  7. BICNU [Suspect]
     Indication: DIFFUSE LARGE B-CELL LYMPHOMA
     Dosage: 573 MG, UNK
     Route: 042
     Dates: start: 20090421, end: 20090421
  8. ETOPOSIDE [Suspect]
     Indication: DIFFUSE LARGE B-CELL LYMPHOMA
     Dosage: 210 MG, UNK
     Route: 042
     Dates: start: 20090119, end: 20090121
  9. ETOPOSIDE [Suspect]
     Dosage: 230 MG, UNK
     Route: 042
     Dates: start: 20090216, end: 20090218
  10. ETOPOSIDE [Suspect]
     Dosage: 285 MG, UNK
     Route: 042
     Dates: start: 20090318, end: 20090320
  11. ETOPOSIDE [Suspect]
     Dosage: 191 MG, UNK
     Route: 042
     Dates: start: 20090422, end: 20090425
  12. ARACYTINE [Suspect]
     Indication: DIFFUSE LARGE B-CELL LYMPHOMA
     Dosage: 191 MG, UNK
     Route: 042
     Dates: start: 20090411, end: 20090425
  13. MELPHALAN [Suspect]
     Indication: B-CELL LYMPHOMA
     Dosage: 267.4 MG, UNK
     Route: 042
     Dates: start: 20090426, end: 20090426
  14. CYCLOPHOSPHAMIDE [Concomitant]
     Indication: B-CELL LYMPHOMA
     Dosage: 1300 MG, UNK
     Dates: start: 20070412, end: 20070912
  15. DOXORUBICIN HCL [Concomitant]
     Indication: B-CELL LYMPHOMA
     Dosage: 86 MG, UNK
     Dates: start: 20070412, end: 20070912
  16. PREDNISONE [Concomitant]
     Indication: B-CELL LYMPHOMA
     Dosage: UNK
     Dates: start: 20070412, end: 20070912
  17. VINCRISTINE [Concomitant]
     Indication: B-CELL LYMPHOMA
     Dosage: UNK
     Dates: start: 20070412, end: 20070912
  18. NEORECORMON [Concomitant]
     Indication: DRUG USE FOR UNKNOWN INDICATION
     Dosage: 30000 IU, UNK
     Dates: start: 20090609
  19. ZELITREX [Concomitant]
     Indication: DRUG USE FOR UNKNOWN INDICATION
     Dosage: 500 MG, UNK
     Dates: start: 20090526
  20. XANAX [Concomitant]
     Indication: DRUG USE FOR UNKNOWN INDICATION
     Dosage: .25 MG, UNK
  21. ZOLOFT [Concomitant]
     Indication: DRUG USE FOR UNKNOWN INDICATION
     Dosage: 50 MG, UNK
     Dates: start: 20090526
  22. PRIMPERAN TAB [Concomitant]
     Indication: DRUG USE FOR UNKNOWN INDICATION
  23. DIFFU K [Concomitant]
     Indication: DRUG USE FOR UNKNOWN INDICATION
  24. SPECIAFOLDINE [Concomitant]
     Indication: DRUG USE FOR UNKNOWN INDICATION
  25. MESNA [Concomitant]
     Indication: DIFFUSE LARGE B-CELL LYMPHOMA
     Dosage: 850 MG, UNK
     Route: 042
     Dates: start: 20090119, end: 20090121
  26. FASTURTEC [Concomitant]
     Indication: B-CELL LYMPHOMA
     Dosage: 15 MG, UNK
     Dates: start: 20090119, end: 20090119
  27. GRANOCYTE [Concomitant]
     Indication: DRUG USE FOR UNKNOWN INDICATION
     Dosage: UNK
     Dates: start: 20090429
  28. TAZOCILLINE [Concomitant]
     Indication: DRUG USE FOR UNKNOWN INDICATION
     Dosage: UNK
     Dates: start: 20090503
  29. OFLOCET [Concomitant]
     Indication: DRUG USE FOR UNKNOWN INDICATION
     Dosage: UNK
     Dates: start: 20090503
  30. VANCOMYCIN HCL [Concomitant]
     Indication: DRUG USE FOR UNKNOWN INDICATION
     Dosage: UNK
     Dates: start: 20090501
  31. AUGMENTIN [Concomitant]
     Indication: DRUG USE FOR UNKNOWN INDICATION
     Dosage: UNK
     Dates: start: 20090501
  32. ROCEPHIN [Concomitant]
     Indication: DRUG USE FOR UNKNOWN INDICATION
     Dosage: UNK
     Dates: start: 20090501

REACTIONS (3)
  - AGRANULOCYTOSIS [None]
  - PANCYTOPENIA [None]
  - THROMBOSIS [None]
